FAERS Safety Report 6063707-9 (Version None)
Quarter: 2009Q1

REPORT INFORMATION
  Report Type: 
  Country: None (occurrence: None)
  Receive Date: 20090130
  Receipt Date: 20090122
  Transmission Date: 20090719
  Serious: Yes (Hospitalization, Disabling)
  Sender: FDA-Public Use
  Company Number: 0SCN-PR-0901S-0038

PATIENT
  Age: 44 Year
  Sex: Female

DRUGS (1)
  1. OMNISCAN [Suspect]
     Indication: THROMBOSIS
     Dosage: SINGE DOSE
     Dates: start: 20050509, end: 20050509

REACTIONS (7)
  - ASTHENIA [None]
  - FALL [None]
  - MUSCULAR WEAKNESS [None]
  - NEPHROGENIC SYSTEMIC FIBROSIS [None]
  - PARAESTHESIA [None]
  - PERITONEAL DIALYSIS [None]
  - TREATMENT FAILURE [None]
